FAERS Safety Report 17901138 (Version 1)
Quarter: 2020Q2

REPORT INFORMATION
  Report Type: Spontaneous
  Country: US (occurrence: US)
  Receive Date: 20200616
  Receipt Date: 20200616
  Transmission Date: 20200714
  Serious: Yes (Other)
  Sender: FDA-Public Use
  Company Number: US-HIKMA PHARMACEUTICALS USA INC.-US-H14001-20-02906

PATIENT
  Sex: Female

DRUGS (1)
  1. MORPHINE [Suspect]
     Active Substance: MORPHINE
     Indication: PLASMA CELL MYELOMA
     Route: 065

REACTIONS (4)
  - Confusional state [Unknown]
  - Hallucination [Unknown]
  - Off label use [Unknown]
  - Memory impairment [Unknown]
